FAERS Safety Report 5141045-6 (Version None)
Quarter: 2006Q4

REPORT INFORMATION
  Report Type: 
  Country: None (occurrence: None)
  Receive Date: 20061026
  Receipt Date: 20061017
  Transmission Date: 20070319
  Serious: Yes (Other)
  Sender: FDA-Public Use
  Company Number: RB-4202-2006

PATIENT
  Age: 34 Year
  Sex: Male

DRUGS (7)
  1. BUPRENORPHINE HCL [Suspect]
     Indication: PAIN
     Dosage: 35UG Q1H TRANSDERMAL
     Route: 062
  2. IFOSFAMIDE [Suspect]
     Indication: DRUG USE FOR UNKNOWN INDICATION
  3. DOXORUBICIN HCL [Concomitant]
  4. CISPLATIN [Concomitant]
  5. ETOPOSIDE [Concomitant]
  6. CODEINE [Concomitant]
  7. ACETAMINOPHEN [Concomitant]

REACTIONS (6)
  - CONFUSIONAL STATE [None]
  - DRUG INEFFECTIVE [None]
  - DRUG INTERACTION [None]
  - RESPIRATORY DEPRESSION [None]
  - SINUS BRADYCARDIA [None]
  - SOMNOLENCE [None]
